FAERS Safety Report 13079490 (Version 1)
Quarter: 2017Q1

REPORT INFORMATION
  Report Type: Spontaneous
  Country: GB (occurrence: GB)
  Receive Date: 20170103
  Receipt Date: 20170103
  Transmission Date: 20170428
  Serious: Yes (Hospitalization)
  Sender: FDA-Public Use
  Company Number: GB-DEXPHARM-20162517

PATIENT
  Age: 78 Year

DRUGS (12)
  1. DILTIAZEM. [Concomitant]
     Active Substance: DILTIAZEM
     Dosage: DAILY DOSE: 120 MG MILLGRAM(S) EVERY DAYS
  2. ISOSORBIDE MONONITRATE. [Concomitant]
     Active Substance: ISOSORBIDE MONONITRATE
     Dosage: DAILY DOSE: 30 MG MILLGRAM(S) EVERY DAYS
  3. FOLIC ACID. [Concomitant]
     Active Substance: FOLIC ACID
     Dosage: DAILY DOSE: 5 MG MILLGRAM(S) EVERY DAYS
  4. PHENOBARBITAL. [Concomitant]
     Active Substance: PHENOBARBITAL
     Dosage: DAILY DOSE: 60 MG MILLGRAM(S) EVERY DAYS
  5. OMEPRAZOLE. [Suspect]
     Active Substance: OMEPRAZOLE
     Dosage: DAILY DOSE: 20 MG MILLGRAM(S) EVERY DAYS
  6. ASPIRIN. [Concomitant]
     Active Substance: ASPIRIN
     Dosage: DAILY DOSE: 75 MG MILLGRAM(S) EVERY DAYS
  7. CARBAMAZEPINE. [Concomitant]
     Active Substance: CARBAMAZEPINE
     Indication: EPILEPSY
     Dosage: DAILY DOSE: 600 MG MILLGRAM(S) EVERY DAYS
     Dates: start: 1996
  8. PHENYTOIN. [Concomitant]
     Active Substance: PHENYTOIN
     Dosage: DAILY DOSE: 300 MG MILLGRAM(S) EVERY DAYS
  9. SIRDUPLA [Concomitant]
     Dosage: 25MICROGRAMS/DOSE / 250MICROGRAMS/DOSE
     Route: 055
  10. PERINDOPRIL [Suspect]
     Active Substance: PERINDOPRIL
     Dosage: DAILY DOSE: 4 MG MILLGRAM(S) EVERY DAYS
  11. SIMVASTATIN. [Concomitant]
     Active Substance: SIMVASTATIN
     Dosage: DAILY DOSE: 40 MG MILLGRAM(S) EVERY DAYS
  12. SALBUTAMOL [Concomitant]
     Active Substance: ALBUTEROL

REACTIONS (1)
  - Hyponatraemia [Recovering/Resolving]
